FAERS Safety Report 5988866-5 (Version None)
Quarter: 2008Q4

REPORT INFORMATION
  Report Type: 
  Country: None (occurrence: None)
  Receive Date: 20081210
  Receipt Date: 20080714
  Transmission Date: 20090506
  Serious: Yes (Hospitalization)
  Sender: FDA-Public Use
  Company Number: US-AMGEN-STX294314

PATIENT
  Sex: Male

DRUGS (1)
  1. ENBREL [Suspect]
     Indication: PSORIASIS
     Route: 065
     Dates: end: 20070101

REACTIONS (4)
  - LYMPHOPENIA [None]
  - NEUTROPENIA [None]
  - PYREXIA [None]
  - SEPSIS [None]
